FAERS Safety Report 9307688 (Version 1)
Quarter: 2013Q2

REPORT INFORMATION
  Report Type: Spontaneous
  Country: US (occurrence: US)
  Receive Date: 20130524
  Receipt Date: 20130524
  Transmission Date: 20140414
  Serious: No
  Sender: FDA-Public Use
  Company Number: US-BAYER-2013-064217

PATIENT
  Sex: Male
  Weight: 120.18 kg

DRUGS (8)
  1. BETASERON [Suspect]
     Dosage: 0.25 MG, QOD
     Route: 058
     Dates: start: 2003
  2. DANTROLENE [Concomitant]
     Dosage: 100 MG, UNK
  3. DIOVAN [Concomitant]
     Dosage: 40 MG, UNK
  4. DETROL LA [Concomitant]
     Dosage: 2 MG, UNK
  5. GEMFIBROZIL [Concomitant]
     Dosage: 600 MG, UNK
  6. LEXAPRO [Concomitant]
     Dosage: 5 MG, UNK
  7. FISH OIL [Concomitant]
  8. TRIAMTERENE AND HYDROCHLOROTHIAZID [Concomitant]
     Dosage: 37.5-25 MG

REACTIONS (1)
  - Injection site induration [None]
